FAERS Safety Report 18623042 (Version 1)
Quarter: 2020Q4

REPORT INFORMATION
  Report Type: Spontaneous
  Country: CA (occurrence: CA)
  Receive Date: 20201216
  Receipt Date: 20201216
  Transmission Date: 20210114
  Serious: Yes (Other)
  Sender: FDA-Public Use
  Company Number: CA-ORION CORPORATION ORION PHARMA-20_00012166

PATIENT
  Age: 42 Year
  Sex: Female

DRUGS (8)
  1. CORTIMENT [Concomitant]
     Route: 048
  2. METHOTREXATE (TRADE NAME UNKNOWN) [Suspect]
     Active Substance: METHOTREXATE
     Indication: COLITIS ULCERATIVE
     Route: 048
  3. MESALAZINE [Concomitant]
     Active Substance: MESALAMINE
     Route: 065
  4. PENTASA [Concomitant]
     Active Substance: MESALAMINE
     Route: 048
  5. FOLIC ACID. [Concomitant]
     Active Substance: FOLIC ACID
     Route: 065
  6. SALOFALK [Concomitant]
     Dosage: 3 TIMES A WEEK
     Route: 065
  7. METHOTREXATE (TRADE NAME UNKNOWN) [Suspect]
     Active Substance: METHOTREXATE
     Route: 048
  8. INFLECTRA [Concomitant]
     Active Substance: INFLIXIMAB-DYYB
     Indication: COLITIS ULCERATIVE
     Dosage: EVERY 4 WEEKS
     Route: 042
     Dates: start: 2020

REACTIONS (10)
  - Faecal calprotectin increased [Unknown]
  - Back pain [Unknown]
  - Cough [Unknown]
  - Bronchitis chronic [Unknown]
  - Product use in unapproved indication [Unknown]
  - Drug ineffective for unapproved indication [Unknown]
  - Spondylolisthesis [Unknown]
  - Therapy non-responder [Unknown]
  - Radiculopathy [Unknown]
  - Colitis ulcerative [Unknown]

NARRATIVE: CASE EVENT DATE: 2020
